FAERS Safety Report 4490880-6 (Version None)
Quarter: 2004Q4

REPORT INFORMATION
  Report Type: 
  Country: None (occurrence: None)
  Receive Date: 20041027
  Receipt Date: 20041012
  Transmission Date: 20050328
  Serious: Yes (Other)
  Sender: FDA-Public Use
  Company Number: 2004-BP-09877RO

PATIENT
  Sex: 0

DRUGS (1)
  1. AZATHIOPRINE [Suspect]
     Indication: COLITIS ULCERATIVE

REACTIONS (10)
  - BONE MARROW TOXICITY [None]
  - CONDITION AGGRAVATED [None]
  - DYSPEPSIA [None]
  - HEPATOTOXICITY [None]
  - HERPES ZOSTER OPHTHALMIC [None]
  - INFECTION [None]
  - MEAN CELL VOLUME INCREASED [None]
  - NEUTROPENIA [None]
  - PANCREATITIS [None]
  - THROMBOCYTOPENIA [None]
